FAERS Safety Report 10272644 (Version 3)
Quarter: 2014Q3

REPORT INFORMATION
  Report Type: Spontaneous
  Country: ZA (occurrence: ZA)
  Receive Date: 20140702
  Receipt Date: 20140717
  Transmission Date: 20150326
  Serious: Yes (Other)
  Sender: FDA-Public Use
  Company Number: PHHY2014ZA077964

PATIENT
  Age: 57 Year
  Sex: Female

DRUGS (1)
  1. ACLASTA [Suspect]
     Active Substance: ZOLEDRONIC ACID
     Indication: OSTEOPOROSIS
     Route: 042

REACTIONS (11)
  - Pruritus [Unknown]
  - Rash [Unknown]
  - Myalgia [Unknown]
  - Muscular weakness [Unknown]
  - Peripheral swelling [Unknown]
  - Erythema nodosum [Unknown]
  - Rash generalised [Unknown]
  - Dermatomyositis [Unknown]
  - Lichenification [Unknown]
  - Pain [Unknown]
  - Musculoskeletal stiffness [Unknown]
